FAERS Safety Report 16404033 (Version 1)
Quarter: 2019Q2

REPORT INFORMATION
  Report Type: Spontaneous
  Country: US (occurrence: US)
  Receive Date: 20190501
  Receipt Date: 20190501
  Transmission Date: 20190711
  Serious: Yes (Other)
  Sender: FDA-Public Use
  Company Number: None

PATIENT
  Age: 50 Year
  Sex: Male
  Weight: 124.74 kg

DRUGS (8)
  1. HYDROCHLOROTHIAZIDE. [Concomitant]
     Active Substance: HYDROCHLOROTHIAZIDE
  2. VALSARTAN AND HYDROCHLOROTHIAZIDE [Suspect]
     Active Substance: HYDROCHLOROTHIAZIDE\VALSARTAN
     Indication: HYPERTENSION
     Dosage: ?          QUANTITY:320MG-25MG;?
     Route: 048
     Dates: start: 20171115
  3. VITAMIN D [Concomitant]
     Active Substance: VITAMIN D NOS
  4. ATENOLOL. [Concomitant]
     Active Substance: ATENOLOL
  5. BACLOFEN. [Concomitant]
     Active Substance: BACLOFEN
  6. DICLOFENAC [Concomitant]
     Active Substance: DICLOFENAC
  7. PANTOPRAZOLE [Concomitant]
     Active Substance: PANTOPRAZOLE
  8. TYLENOL [Concomitant]
     Active Substance: ACETAMINOPHEN

REACTIONS (3)
  - Fatigue [None]
  - Brain oedema [None]
  - Headache [None]
